FAERS Safety Report 10297510 (Version 1)
Quarter: 2014Q3

REPORT INFORMATION
  Report Type: Spontaneous
  Country: US (occurrence: US)
  Receive Date: 20140711
  Receipt Date: 20140711
  Transmission Date: 20150326
  Serious: No
  Sender: FDA-Public Use
  Company Number: US-BAYER-2014-104184

PATIENT
  Age: 67 Year
  Sex: Female
  Weight: 86 kg

DRUGS (3)
  1. SYNTHROID [Concomitant]
     Active Substance: LEVOTHYROXINE SODIUM
  2. ALEVE [Suspect]
     Active Substance: NAPROXEN SODIUM
     Indication: ANALGESIC THERAPY
     Dosage: 1 DF, PRN
     Route: 048
     Dates: end: 20140708
  3. ALEVE [Suspect]
     Active Substance: NAPROXEN SODIUM
     Indication: PAIN IN EXTREMITY
     Dosage: 1 DF, QD
     Route: 048
     Dates: start: 201406, end: 20140708

REACTIONS (2)
  - Drug ineffective [None]
  - Incorrect drug administration duration [None]

NARRATIVE: CASE EVENT DATE: 201406
